FAERS Safety Report 8463968-2 (Version None)
Quarter: 2012Q2

REPORT INFORMATION
  Report Type: 
  Country: None (occurrence: None)
  Receive Date: 20120625
  Receipt Date: 20120615
  Transmission Date: 20120825
  Serious: Yes (Hospitalization, Disabling, Other)
  Sender: FDA-Public Use
  Company Number: US-ABBOTT-12P-163-0946343-00

PATIENT
  Sex: Male
  Weight: 56.75 kg

DRUGS (5)
  1. TRAZODONE HCL [Concomitant]
     Indication: DEPRESSION
  2. PERCOCET [Concomitant]
     Indication: ABDOMINAL PAIN
     Dates: start: 20120611
  3. HUMIRA [Suspect]
     Indication: CROHN'S DISEASE
     Route: 058
     Dates: start: 20071201
  4. LANSOPRAZOLE [Concomitant]
     Indication: GASTROOESOPHAGEAL REFLUX DISEASE
  5. LEXAPRO [Concomitant]
     Indication: DEPRESSION

REACTIONS (7)
  - INTESTINAL OBSTRUCTION [None]
  - DIABETES MELLITUS [None]
  - EROSIVE OESOPHAGITIS [None]
  - GASTRITIS [None]
  - PARAESTHESIA [None]
  - ABDOMINAL PAIN [None]
  - GASTRIC ULCER [None]
